FAERS Safety Report 25471025 (Version 1)
Quarter: 2025Q2

REPORT INFORMATION
  Report Type: Spontaneous
  Country: US (occurrence: US)
  Receive Date: 20250624
  Receipt Date: 20250624
  Transmission Date: 20250717
  Serious: Yes (Other)
  Sender: INTRA-CELLULAR THERAPIES
  Company Number: US-INTRA-CELLULAR THERAPIES, INC.-2025ICT01081

PATIENT
  Sex: Female

DRUGS (4)
  1. CAPLYTA [Suspect]
     Active Substance: LUMATEPERONE
  2. ABILIFY [Concomitant]
     Active Substance: ARIPIPRAZOLE
  3. LAMOTRIGINE [Concomitant]
     Active Substance: LAMOTRIGINE
  4. SPRAVATO [Concomitant]
     Active Substance: ESKETAMINE

REACTIONS (1)
  - Suicidal ideation [Unknown]
